FAERS Safety Report 7933925-0 (Version None)
Quarter: 2011Q4

REPORT INFORMATION
  Report Type: 
  Country: None (occurrence: None)
  Receive Date: 20111122
  Receipt Date: 20111109
  Transmission Date: 20120403
  Serious: Yes (Hospitalization)
  Sender: FDA-Public Use
  Company Number: JP-ROCHE-1013147

PATIENT
  Sex: Male

DRUGS (4)
  1. COPEGUS [Suspect]
     Route: 048
     Dates: start: 20110910, end: 20110916
  2. COPEGUS [Suspect]
     Indication: HEPATIC CIRRHOSIS
     Route: 048
     Dates: start: 20110903, end: 20110909
  3. PEGASYS [Suspect]
     Indication: HEPATIC CIRRHOSIS
     Route: 058
     Dates: start: 20110903, end: 20110924
  4. COPEGUS [Suspect]
     Route: 048
     Dates: start: 20110917, end: 20110924

REACTIONS (2)
  - ANAEMIA [None]
  - SYSTEMIC MYCOSIS [None]
